FAERS Safety Report 4287699-8 (Version None)
Quarter: 2004Q1

REPORT INFORMATION
  Report Type: 
  Country: None (occurrence: None)
  Receive Date: 20040209
  Receipt Date: 20030902
  Transmission Date: 20041129
  Serious: No
  Sender: FDA-Public Use
  Company Number: US-GLAXOSMITHKLINE-A0424335A

PATIENT
  Age: 33 Year
  Sex: Female

DRUGS (3)
  1. PAXIL [Suspect]
     Dosage: 12.5MG IN THE MORNING
     Route: 048
     Dates: start: 20030826
  2. XANAX [Concomitant]
  3. DIETARY SUPPLEMENT [Concomitant]

REACTIONS (3)
  - ANGER [None]
  - EUPHORIC MOOD [None]
  - IRRITABILITY [None]
